FAERS Safety Report 5570847-7 (Version None)
Quarter: 2007Q4

REPORT INFORMATION
  Report Type: 
  Country: None (occurrence: None)
  Receive Date: 20071221
  Receipt Date: 20071214
  Transmission Date: 20080405
  Serious: Yes (Life-Threatening)
  Sender: FDA-Public Use
  Company Number: FR-ROCHE-537210

PATIENT
  Age: 79 Year
  Sex: Female

DRUGS (6)
  1. BONIVA [Suspect]
     Indication: DRUG USE FOR UNKNOWN INDICATION
     Dosage: DOSE RPTD AS 1 DOSE QD
     Route: 048
     Dates: start: 20070619, end: 20070925
  2. EUPANTOL [Suspect]
     Indication: DRUG USE FOR UNKNOWN INDICATION
     Route: 048
     Dates: start: 20070925
  3. TRANSIPEG [Suspect]
     Indication: DRUG USE FOR UNKNOWN INDICATION
     Dosage: DOSE RPTD AS 1 DOSE QD
     Route: 048
     Dates: start: 20070925, end: 20071107
  4. IXEL [Suspect]
     Indication: DRUG USE FOR UNKNOWN INDICATION
     Dosage: DRUG RPTD AS IXEL 50
     Route: 048
     Dates: start: 20071105
  5. URBANYL [Suspect]
     Indication: DRUG USE FOR UNKNOWN INDICATION
     Route: 048
     Dates: start: 20071105
  6. STILNOX [Suspect]
     Indication: DRUG USE FOR UNKNOWN INDICATION
     Route: 048
     Dates: start: 20070925

REACTIONS (2)
  - OESOPHAGEAL RUPTURE [None]
  - PNEUMOMEDIASTINUM [None]
